FAERS Safety Report 8399013-7 (Version None)
Quarter: 2012Q2

REPORT INFORMATION
  Report Type: 
  Country: None (occurrence: None)
  Receive Date: 20120531
  Receipt Date: 20120525
  Transmission Date: 20120825
  Serious: Yes (Other)
  Sender: FDA-Public Use
  Company Number: UG-GILEAD-2012-0055716

PATIENT
  Sex: Female

DRUGS (6)
  1. ARTEMETHER [Concomitant]
     Dosage: UNK
     Dates: start: 20111122, end: 20111125
  2. METRONIDAZOLE [Concomitant]
     Dosage: UNK
     Dates: start: 20111025, end: 20111030
  3. FEMICON                            /01292801/ [Concomitant]
     Dosage: UNK
     Dates: start: 20100803, end: 20111122
  4. EMTRICITABINE/TENOFOVIR DISOPROXIL FUMARATE [Suspect]
     Indication: PROPHYLAXIS AGAINST HIV INFECTION
     Dosage: UNK
     Dates: start: 20100413, end: 20111122
  5. LUMEFANTRINE [Concomitant]
     Dosage: UNK
     Dates: start: 20111122, end: 20111125
  6. ACETAMINOPHEN [Concomitant]
     Dosage: UNK
     Dates: start: 20111122, end: 20111125

REACTIONS (1)
  - ABORTION SPONTANEOUS [None]
